FAERS Safety Report 14133300 (Version 1)
Quarter: 2017Q4

REPORT INFORMATION
  Report Type: Spontaneous
  Country: FR (occurrence: FR)
  Receive Date: 20171027
  Receipt Date: 20171027
  Transmission Date: 20180321
  Serious: Yes (Hospitalization)
  Sender: FDA-Public Use
  Company Number: FR-MERCK KGAA-2031662

PATIENT
  Sex: Female

DRUGS (1)
  1. NOVOTHYROX [Suspect]
     Active Substance: LEVOTHYROXINE SODIUM
     Indication: THYROID DISORDER

REACTIONS (8)
  - Arthralgia [None]
  - Paraesthesia [None]
  - Nausea [None]
  - Irritability [None]
  - Gait disturbance [None]
  - Fatigue [Not Recovered/Not Resolved]
  - Deafness transitory [Recovered/Resolved]
  - Balance disorder [None]

NARRATIVE: CASE EVENT DATE: 20170711
